FAERS Safety Report 8094569-6 (Version None)
Quarter: 2011Q4

REPORT INFORMATION
  Report Type: 
  Country: None (occurrence: None)
  Receive Date: 20111222
  Receipt Date: 20111024
  Transmission Date: 20120403
  Serious: Yes (Hospitalization)
  Sender: FDA-Public Use
  Company Number: UTC-010545

PATIENT
  Age: 72 Year
  Sex: Female
  Weight: 38.63 kg

DRUGS (4)
  1. OXYGEN (OXYGEN) (UNKNOWN) [Concomitant]
  2. TYVASO [Suspect]
     Indication: COR PULMONALE CHRONIC
     Dosage: 168 MCG  (42 MCG, 4 IN 1 D), INHALATION
     Route: 055
     Dates: start: 20110519, end: 20110922
  3. DIURETICS (DIURETICS) (UNKNOWN) [Concomitant]
  4. ADCIRCA (TADALAFIL) (UNKNOWN) [Concomitant]

REACTIONS (4)
  - DYSPNOEA [None]
  - SWELLING [None]
  - ASTHENIA [None]
  - DRUG INEFFECTIVE [None]
